FAERS Safety Report 7170048-5 (Version None)
Quarter: 2010Q4

REPORT INFORMATION
  Report Type: 
  Country: None (occurrence: None)
  Receive Date: 20101206
  Receipt Date: 20101118
  Transmission Date: 20110411
  Serious: Yes (Life-Threatening, Hospitalization)
  Sender: FDA-Public Use
  Company Number: 2010004909

PATIENT
  Age: 75 Year
  Sex: Male

DRUGS (8)
  1. TARCEVA [Suspect]
     Indication: NON-SMALL CELL LUNG CANCER
     Dosage: (150 MG, QD), ORAL
     Route: 048
     Dates: start: 20100929, end: 20101004
  2. AVASTIN [Suspect]
     Indication: LUNG ADENOCARCINOMA METASTATIC
     Dosage: INTRAVENOUS DRIP
     Route: 041
     Dates: start: 20100415, end: 20100831
  3. TIOTROPIUM BROMIDE [Concomitant]
  4. FLUTICASONE PROPIONATE/SALMETEROL XINAFOATE [Concomitant]
  5. PLETAL [Concomitant]
  6. DICLOFENAC SODIUM [Concomitant]
  7. CARBOPLATIN [Concomitant]
  8. PACLITAXEL [Concomitant]

REACTIONS (8)
  - BACTERIAL INFECTION [None]
  - DUODENAL PERFORATION [None]
  - ENTEROCOLITIS [None]
  - GASTRITIS [None]
  - INSOMNIA [None]
  - PEPTIC ULCER PERFORATION [None]
  - SEPSIS [None]
  - SHOCK [None]
